FAERS Safety Report 22245574 (Version 1)
Quarter: 2023Q2

REPORT INFORMATION
  Report Type: Spontaneous
  Country: US (occurrence: US)
  Receive Date: 20230424
  Receipt Date: 20230424
  Transmission Date: 20230722
  Serious: Yes (Other)
  Sender: FDA-Public Use
  Company Number: US-TERSERA THERAPEUTICS LLC-2023TRS001879

PATIENT

DRUGS (28)
  1. PRIALT [Suspect]
     Active Substance: ZICONOTIDE ACETATE
     Indication: Pain
     Dosage: 1.3 MCG, QD, (CONCENTRATION: 10 MCG/ML)
     Route: 037
     Dates: start: 20180501
  2. BACLOFEN [Suspect]
     Active Substance: BACLOFEN
     Indication: Pain
     Dosage: UNK
     Route: 037
  3. BUPIVACAINE [Suspect]
     Active Substance: BUPIVACAINE
     Indication: Product used for unknown indication
     Dosage: 2 ML INFILTRATION 1 H
     Route: 037
  4. BUPIVACAINE [Suspect]
     Active Substance: BUPIVACAINE
     Dosage: 1.354 MG/24 HRS (CONCENTRATION: 5MG/ML))
     Route: 037
  5. FENTANYL [Suspect]
     Active Substance: FENTANYL
     Indication: Product used for unknown indication
     Dosage: 2 MCG/ML
     Route: 037
  6. FENTANYL [Suspect]
     Active Substance: FENTANYL
     Dosage: 350 MCG/ML (CONCENTRATION: 94.81 MCG/DAY)
     Route: 037
  7. LIPITOR [Concomitant]
     Active Substance: ATORVASTATIN CALCIUM
     Indication: Product used for unknown indication
     Dosage: 20 MG, QD, EVERY NIGHT AT BEDTIME
     Route: 048
     Dates: start: 20230320
  8. CYMBALTA [Concomitant]
     Active Substance: DULOXETINE HYDROCHLORIDE
     Indication: Product used for unknown indication
     Dosage: 60 MG, QD, 1 TIME PER DAY
     Route: 048
     Dates: start: 20230320
  9. NEURONTIN [Concomitant]
     Active Substance: GABAPENTIN
     Indication: Product used for unknown indication
     Dosage: 300 MG, TAKE ONE CAPSULE EVERY MORNING AND TAKE TWO CAPSULES IN THE PM
     Route: 065
     Dates: start: 20230320
  10. NEURONTIN [Concomitant]
     Active Substance: GABAPENTIN
     Dosage: 1200 MG, TID
     Route: 048
  11. NEURONTIN [Concomitant]
     Active Substance: GABAPENTIN
     Dosage: 300 MG AM + 600 MG PM, BID
     Route: 048
  12. PRINIVIL [Concomitant]
     Active Substance: LISINOPRIL
     Indication: Product used for unknown indication
     Dosage: 10 MG, QD, 1 TIME PER DAY
     Route: 048
     Dates: start: 20230320
  13. MOBIC [Concomitant]
     Active Substance: MELOXICAM
     Indication: Product used for unknown indication
     Dosage: 7.5 MG, TAKE 1-2 TABLETS BY MOUTH DAILY AND AS NEEDED
     Route: 048
     Dates: start: 20230228
  14. MOBIC [Concomitant]
     Active Substance: MELOXICAM
     Dosage: 75-15 MG (1-2X7.5 MG), QD, PRN
     Route: 048
  15. NORCO [Concomitant]
     Active Substance: ACETAMINOPHEN\HYDROCODONE BITARTRATE
     Indication: Pain
     Dosage: 5-325 MG, TAKE 1-2 TABLETS BY MOUTH EVERY 4 HOUR AS NEEDED FOR UP TO 14 DAYS
     Route: 048
     Dates: start: 20230330
  16. LIDEX [Concomitant]
     Active Substance: FLUOCINONIDE
     Indication: Product used for unknown indication
     Dosage: 0.05 %,  APPLY DAILY TO SCALP MONDAY THROUGH FRIDAY
     Route: 061
     Dates: start: 20200730
  17. NIZORAL [Concomitant]
     Active Substance: KETOCONAZOLE
     Indication: Product used for unknown indication
     Dosage: 2 %, APPLY TO SCALP WHEN SHOWERING, LET SIT FOR 5 MINUTES, ALTERNATING WITH SHAMPOO.
     Route: 061
     Dates: start: 20200730
  18. FLEXERIL [Concomitant]
     Active Substance: CYCLOBENZAPRINE HYDROCHLORIDE
     Indication: Muscle spasms
     Dosage: 10 MG, PRN, AT BEDTIME AS NEEDED
     Route: 048
  19. VITAMIN D3 [Concomitant]
     Active Substance: CHOLECALCIFEROL
     Indication: Product used for unknown indication
     Dosage: 1000 IU INTERNATIONAL UNIT(S), BID
     Route: 048
  20. CLEOCIN-T [Concomitant]
     Indication: Rash
     Dosage: APPLY 1 APPLICATION TO AFFECTED AREA 2 TIMES A DAY AS NEEDED
     Route: 061
  21. ALEVE [Concomitant]
     Active Substance: NAPROXEN SODIUM
     Indication: Product used for unknown indication
     Dosage: 440 MG, 2 TIMES A DAY AS NEEDED
     Route: 048
  22. TYLENOL [Concomitant]
     Active Substance: ACETAMINOPHEN
     Indication: Pain
     Dosage: 1000 MG, EVERY 6 HOURS AS NEEDED
     Route: 048
  23. ASPIRIN [Concomitant]
     Active Substance: ASPIRIN
     Indication: Product used for unknown indication
     Dosage: 81 MG, QD
     Route: 048
  24. CYCLOBENZAPRINE [Concomitant]
     Active Substance: CYCLOBENZAPRINE
     Indication: Product used for unknown indication
     Dosage: 10 MG, BEDTIME
     Route: 048
  25. DULOXETINE [Concomitant]
     Active Substance: DULOXETINE
     Indication: Product used for unknown indication
     Dosage: 60 MG, QD
     Route: 048
  26. NITROSTAT [Concomitant]
     Active Substance: NITROGLYCERIN
     Indication: Product used for unknown indication
     Dosage: 0.4 MG, Q5M, PRN
     Route: 060
  27. COVID-19 VACCINE [Concomitant]
     Indication: COVID-19 immunisation
     Dosage: UNK
     Route: 065
  28. INFLUENZA VIRUS VACCINE [Concomitant]
     Active Substance: INFLUENZA VIRUS VACCINE
     Indication: Influenza immunisation
     Dosage: 0.5 MILLILITER
     Route: 030
     Dates: start: 20230323

REACTIONS (18)
  - Type 2 diabetes mellitus [Unknown]
  - Arteriosclerosis coronary artery [Unknown]
  - Deafness neurosensory [Unknown]
  - Bundle branch block right [Unknown]
  - Benign prostatic hyperplasia [Unknown]
  - Obstructive sleep apnoea syndrome [Unknown]
  - Essential hypertension [Unknown]
  - Obesity [Unknown]
  - Hyperlipidaemia [Unknown]
  - White blood cell count increased [Unknown]
  - Immature granulocyte count increased [Unknown]
  - Neutrophil percentage increased [Unknown]
  - Lymphocyte percentage decreased [Unknown]
  - Immature granulocyte percentage increased [Unknown]
  - Blood urea increased [Unknown]
  - Oxygen saturation decreased [Unknown]
  - Visual impairment [Unknown]
  - Off label use [Unknown]
